FAERS Safety Report 17976210 (Version 2)
Quarter: 2020Q3

REPORT INFORMATION
  Report Type: Spontaneous
  Country: FR (occurrence: FR)
  Receive Date: 20200702
  Receipt Date: 20200729
  Transmission Date: 20201103
  Serious: Yes (Death)
  Sender: FDA-Public Use
  Company Number: FR-009507513-2007FRA000247

PATIENT
  Age: 76 Year
  Sex: Male
  Weight: 63 kg

DRUGS (1)
  1. KEYTRUDA [Suspect]
     Active Substance: PEMBROLIZUMAB
     Indication: ADENOCARCINOMA GASTRIC
     Dosage: 200 MILLIGRAM, Q3W
     Route: 042
     Dates: start: 20190923, end: 20190923

REACTIONS (1)
  - Myocarditis [Fatal]

NARRATIVE: CASE EVENT DATE: 20191018
